FAERS Safety Report 4510251-3 (Version None)
Quarter: 2004Q4

REPORT INFORMATION
  Report Type: 
  Country: None (occurrence: None)
  Receive Date: 20041122
  Receipt Date: 20041108
  Transmission Date: 20050328
  Serious: Yes (Other)
  Sender: FDA-Public Use
  Company Number: 2004089353

PATIENT

DRUGS (1)
  1. ZOLOFT [Suspect]
     Indication: ILL-DEFINED DISORDER

REACTIONS (2)
  - ACCIDENT AT WORK [None]
  - LIMB TRAUMATIC AMPUTATION [None]
